FAERS Safety Report 8029731-1 (Version None)
Quarter: 2012Q1

REPORT INFORMATION
  Report Type: 
  Country: None (occurrence: None)
  Receive Date: 20120109
  Receipt Date: 20111230
  Transmission Date: 20120608
  Serious: Yes (Other)
  Sender: FDA-Public Use
  Company Number: US-BAYER-2011-032273

PATIENT
  Age: 34 Year
  Sex: Female
  Weight: 54 kg

DRUGS (5)
  1. YAZ [Suspect]
     Indication: ACNE
  2. YAZ [Suspect]
     Indication: CONTRACEPTION
     Dosage: UNK
     Dates: start: 20060201, end: 20090701
  3. YASMIN [Suspect]
     Indication: CONTRACEPTION
     Dosage: UNK
     Dates: start: 20050101, end: 20060201
  4. NEXIUM [Concomitant]
     Dosage: 40 MG, UNK
     Dates: start: 20090607, end: 20090904
  5. YASMIN [Suspect]
     Indication: ACNE

REACTIONS (3)
  - CHOLECYSTITIS [None]
  - ABDOMINAL PAIN [None]
  - PAIN [None]
